FAERS Safety Report 9825709 (Version 1)
Quarter: 2014Q1

REPORT INFORMATION
  Report Type: Spontaneous
  Country: US (occurrence: US)
  Receive Date: 20140117
  Receipt Date: 20140117
  Transmission Date: 20141002
  Serious: No
  Sender: FDA-Public Use
  Company Number: US-TEVA-454243USA

PATIENT
  Age: 71 Year
  Sex: Female
  Weight: 77.18 kg

DRUGS (4)
  1. PROAIR HFA [Suspect]
     Indication: CHRONIC OBSTRUCTIVE PULMONARY DISEASE
     Route: 055
  2. LISINOPRIL [Concomitant]
     Indication: BLOOD PRESSURE
  3. VITAMIN D [Concomitant]
     Indication: BONE DENSITY ABNORMAL
  4. CIPRO [Concomitant]

REACTIONS (2)
  - Rash pruritic [Recovered/Resolved]
  - Urticaria [Recovered/Resolved]
